FAERS Safety Report 8788902 (Version 1)
Quarter: 2012Q4

REPORT INFORMATION
  Report Type: Report from Study
  Country: US (occurrence: US)
  Receive Date: 20120915
  Receipt Date: 20120915
  Transmission Date: 20130627
  Serious: Yes (Hospitalization)
  Sender: FDA-Public Use
  Company Number: US-MILLENNIUM-2012-06493

PATIENT
  Age: 30 Year
  Sex: Male
  Weight: 102.4 kg

DRUGS (3)
  1. PLACEBO [Suspect]
     Indication: PROSTATE CANCER
     Dosage: 400 mg, bid
     Route: 048
     Dates: start: 20120614, end: 20120914
  2. BLINDED TAK-700 [Suspect]
     Indication: PROSTATE CANCER
     Dosage: 400 mg, bid
     Route: 048
     Dates: start: 20120614, end: 20120914
  3. PREDNISONE [Suspect]
     Indication: PROSTATE CANCER
     Dosage: 5 mg, bid
     Route: 048
     Dates: start: 20120614, end: 20120914

REACTIONS (1)
  - Pneumonia [Unknown]
